FAERS Safety Report 9838081 (Version 2)
Quarter: 2014Q1

REPORT INFORMATION
  Report Type: Spontaneous
  Country: US (occurrence: US)
  Receive Date: 20140123
  Receipt Date: 20140123
  Transmission Date: 20141002
  Serious: Yes (Hospitalization)
  Sender: FDA-Public Use
  Company Number: US-B.I. PHARMACEUTICALS,INC./RIDGEFIELD-2013-BI-21321BP

PATIENT
  Sex: Male
  Weight: 68.04 kg

DRUGS (12)
  1. PRADAXA [Suspect]
     Indication: ATRIAL FIBRILLATION
     Dosage: 150 MG
     Dates: start: 20110326, end: 20110921
  2. TERAZOSIN [Concomitant]
  3. SIMVASTATIN [Concomitant]
  4. METOPROLOL [Concomitant]
  5. GLYBURIDE [Concomitant]
  6. OMEPRAZOLE [Concomitant]
  7. LASIX [Concomitant]
  8. RAMIPRIL [Concomitant]
  9. DILTIAZEM [Concomitant]
  10. MULTIVITAMIN [Concomitant]
  11. LEVOTHYROXINE [Concomitant]
  12. NEBULIZED ALBUTEROL [Concomitant]

REACTIONS (2)
  - Gastrointestinal haemorrhage [Unknown]
  - Anaemia [Unknown]
